FAERS Safety Report 5156413-6 (Version None)
Quarter: 2006Q4

REPORT INFORMATION
  Report Type: 
  Country: None (occurrence: None)
  Receive Date: 20061122
  Receipt Date: 20061120
  Transmission Date: 20070319
  Serious: Yes (Other)
  Sender: FDA-Public Use
  Company Number: US-BRISTOL-MYERS SQUIBB COMPANY-13584768

PATIENT
  Age: 13 Year
  Sex: Male

DRUGS (2)
  1. ABILIFY [Suspect]
     Indication: AGGRESSION
  2. FAMOTIDINE [Concomitant]

REACTIONS (1)
  - PANCYTOPENIA [None]
